FAERS Safety Report 14412764 (Version 1)
Quarter: 2018Q1

REPORT INFORMATION
  Report Type: Spontaneous
  Country: NL (occurrence: NL)
  Receive Date: 20180119
  Receipt Date: 20180119
  Transmission Date: 20180509
  Serious: Yes (Other)
  Sender: FDA-Public Use
  Company Number: NL-PFIZER INC-2018021441

PATIENT
  Sex: Female

DRUGS (2)
  1. ORGAMETRIL [Interacting]
     Active Substance: LYNESTRENOL
  2. PROVERA [Suspect]
     Active Substance: MEDROXYPROGESTERONE ACETATE

REACTIONS (3)
  - Seizure [Unknown]
  - Drug interaction [Unknown]
  - Drug ineffective [Unknown]
